FAERS Safety Report 4920936-2 (Version None)
Quarter: 2006Q1

REPORT INFORMATION
  Report Type: 
  Country: None (occurrence: None)
  Receive Date: 20060217
  Receipt Date: 20060203
  Transmission Date: 20060701
  Serious: Yes (Other)
  Sender: FDA-Public Use
  Company Number: 200610620GDS

PATIENT
  Age: 58 Year
  Sex: Male

DRUGS (2)
  1. CIPRO [Suspect]
     Dosage: 1000 MG, TOTAL DAILY, ORAL
     Route: 048
  2. BIAXIN [Suspect]
     Dosage: 500 MG, TOTAL DAILY, ORAL
     Route: 048

REACTIONS (7)
  - ANTINUCLEAR ANTIBODY POSITIVE [None]
  - NEPHROTIC SYNDROME [None]
  - OEDEMA PERIPHERAL [None]
  - POLYARTHRITIS [None]
  - RASH MACULO-PAPULAR [None]
  - RED BLOOD CELL SEDIMENTATION RATE INCREASED [None]
  - SYSTEMIC LUPUS ERYTHEMATOSUS [None]
